FAERS Safety Report 6005312-6 (Version None)
Quarter: 2008Q4

REPORT INFORMATION
  Report Type: 
  Country: None (occurrence: None)
  Receive Date: 20081215
  Receipt Date: 20081205
  Transmission Date: 20090506
  Serious: Yes (Other)
  Sender: FDA-Public Use
  Company Number: CHPA2008US21791

PATIENT
  Age: 18 Year
  Sex: Male
  Weight: 90.7 kg

DRUGS (1)
  1. EXCEDRIN PM   (NCH) (ACETAMINOPHEN (PARACETAMOL), DIPHENHYDRAMINE HYDR [Suspect]
     Dosage: 10 DF,ONCE/SINGLE,ORAL
     Route: 048
     Dates: start: 20081204, end: 20081204

REACTIONS (4)
  - DIZZINESS [None]
  - FATIGUE [None]
  - HYPERTENSION [None]
  - INCORRECT DOSE ADMINISTERED [None]
